FAERS Safety Report 8305363 (Version 2)
Quarter: 2013Q1

REPORT INFORMATION
  Report Type: Spontaneous
  Country: US (occurrence: US)
  Receive Date: 20111221
  Receipt Date: 20130108
  Transmission Date: 20140127
  Serious: No
  Sender: FDA-Public Use
  Company Number: US-GLAXOSMITHKLINE-A0948830A

PATIENT
  Age: 79 Year
  Sex: Female

DRUGS (12)
  1. LOVAZA [Suspect]
     Indication: BLOOD TRIGLYCERIDES INCREASED
     Dosage: 1CAP TWICE PER DAY
     Route: 048
     Dates: start: 20110614
  2. EXFORGE [Concomitant]
  3. METOPROLOL [Concomitant]
  4. SYNTHROID [Concomitant]
  5. CHLORTHALIDONE [Concomitant]
  6. OMEPRAZOLE [Concomitant]
  7. TRAMADOL [Concomitant]
  8. ZOLPIDEM [Concomitant]
  9. DORZOLAMIDE HYDROCHLORIDE [Concomitant]
  10. LUMIGAN [Concomitant]
  11. RESTASIS [Concomitant]
  12. TIMOLOL [Concomitant]

REACTIONS (4)
  - Blood cholesterol increased [Unknown]
  - High density lipoprotein increased [Unknown]
  - Low density lipoprotein increased [Unknown]
  - Blood triglycerides increased [Unknown]
